FAERS Safety Report 8773290 (Version 3)
Quarter: 2012Q4

REPORT INFORMATION
  Report Type: 
  Country: SE (occurrence: SE)
  Receive Date: 20120907
  Receipt Date: 20121101
  Transmission Date: 20130627
  Serious: Yes (Death, Hospitalization)
  Sender: FDA-Public Use
  Company Number: SE-NOVOPROD-358941

PATIENT
  Age: 69 Year
  Sex: Female

DRUGS (12)
  1. VICTOZA [Suspect]
     Indication: DIABETES MELLITUS
     Dosage: 0.2 ml, qd
     Route: 058
     Dates: start: 20110429, end: 20120518
  2. NOVORAPID [Concomitant]
  3. BRICANYL TURBUHALER [Concomitant]
  4. OMEPRAZOL                          /00661201/ [Concomitant]
  5. METOPROLOL [Concomitant]
  6. ENALAPRIL [Concomitant]
  7. AMLODIPIN                          /00972401/ [Concomitant]
  8. OVESTERIN [Concomitant]
  9. PULMICORT [Concomitant]
  10. ESIDREX [Concomitant]
  11. TROMBYL [Concomitant]
  12. PREDNISOLON                        /00016201/ [Concomitant]

REACTIONS (1)
  - Hepatic failure [Fatal]
